FAERS Safety Report 23951099 (Version 1)
Quarter: 2024Q2

REPORT INFORMATION
  Report Type: Spontaneous
  Country: US (occurrence: None)
  Receive Date: 20240607
  Receipt Date: 20240607
  Transmission Date: 20240715
  Serious: Yes (Hospitalization)
  Sender: FDA-Public Use
  Company Number: None

PATIENT
  Age: 74 Year
  Sex: Female
  Weight: 42 kg

DRUGS (1)
  1. CARBOPLATIN [Suspect]
     Active Substance: CARBOPLATIN
     Dates: start: 20240501, end: 20240530

REACTIONS (3)
  - Abdominal pain [None]
  - Pneumomediastinum [None]
  - Duodenal ulcer perforation [None]

NARRATIVE: CASE EVENT DATE: 20240525
